FAERS Safety Report 6222013-X (Version None)
Quarter: 2009Q2

REPORT INFORMATION
  Report Type: 
  Country: None (occurrence: None)
  Receive Date: 20090608
  Receipt Date: 20090608
  Transmission Date: 20091009
  Serious: Yes (Hospitalization, Other)
  Sender: FDA-Public Use
  Company Number: None

PATIENT
  Age: 36 Year
  Sex: Female
  Weight: 58.9676 kg

DRUGS (2)
  1. LEVAQUIN [Suspect]
     Indication: PYELONEPHRITIS
     Dosage: 750 MG DAILY IV
     Route: 042
     Dates: start: 20090531, end: 20090603
  2. LEVAQUIN [Suspect]
     Indication: PYREXIA
     Dosage: 750 MG DAILY IV
     Route: 042
     Dates: start: 20090531, end: 20090603

REACTIONS (12)
  - ASCITES [None]
  - BRADYCARDIA [None]
  - CHEST DISCOMFORT [None]
  - DYSPNOEA [None]
  - FATIGUE [None]
  - HEADACHE [None]
  - ILEUS [None]
  - NECK PAIN [None]
  - PITTING OEDEMA [None]
  - PLEURAL EFFUSION [None]
  - URINE OUTPUT DECREASED [None]
  - WEIGHT INCREASED [None]
